FAERS Safety Report 13897172 (Version 1)
Quarter: 2017Q3

REPORT INFORMATION
  Report Type: Spontaneous
  Country: AU (occurrence: AU)
  Receive Date: 20170823
  Receipt Date: 20170823
  Transmission Date: 20171127
  Serious: Yes (Hospitalization, Other)
  Sender: FDA-Public Use
  Company Number: AU-MYLANLABS-2017M1051817

PATIENT

DRUGS (1)
  1. ALLOPURINOL. [Suspect]
     Active Substance: ALLOPURINOL
     Indication: ARTHRITIS
     Route: 065

REACTIONS (7)
  - Drug reaction with eosinophilia and systemic symptoms [Recovering/Resolving]
  - Histiocytosis haematophagic [Recovered/Resolved]
  - Epstein-Barr virus infection [Recovering/Resolving]
  - Acute kidney injury [Recovering/Resolving]
  - Cytomegalovirus infection [Recovering/Resolving]
  - Rhabdomyolysis [Recovering/Resolving]
  - Liver injury [Recovering/Resolving]
